FAERS Safety Report 9846250 (Version 1)
Quarter: 2014Q1

REPORT INFORMATION
  Report Type: Spontaneous
  Country: AT (occurrence: AT)
  Receive Date: 20140127
  Receipt Date: 20140127
  Transmission Date: 20141002
  Serious: Yes (Hospitalization)
  Sender: FDA-Public Use
  Company Number: PHHY2014AT007933

PATIENT
  Age: 80 Year
  Sex: Male

DRUGS (9)
  1. HYDROCHLOROTHIAZIDE [Suspect]
  2. FUROSEMIDE [Interacting]
  3. RIVAROXABAN [Suspect]
     Indication: ATRIAL FIBRILLATION
     Dosage: 20 MG, DAILY
  4. ENALAPRIL [Concomitant]
  5. ALLOPURINOL [Concomitant]
  6. BISOPROLOL [Concomitant]
  7. SIMVASTATIN [Concomitant]
  8. AMLODIPINE [Concomitant]
  9. CIPROFLOXACIN [Concomitant]

REACTIONS (3)
  - Cerebrovascular accident [Not Recovered/Not Resolved]
  - Aphasia [Not Recovered/Not Resolved]
  - Hemiparesis [Not Recovered/Not Resolved]
